FAERS Safety Report 12290317 (Version 2)
Quarter: 2016Q3

REPORT INFORMATION
  Report Type: Spontaneous
  Country: JP (occurrence: JP)
  Receive Date: 20160421
  Receipt Date: 20160705
  Transmission Date: 20161109
  Serious: Yes (Hospitalization)
  Sender: FDA-Public Use
  Company Number: PHJP2016JP010124

PATIENT
  Age: 63 Year
  Sex: Male
  Weight: 63 kg

DRUGS (2)
  1. VOTRIENT [Suspect]
     Active Substance: PAZOPANIB HYDROCHLORIDE
     Indication: RENAL CELL CARCINOMA
     Dosage: 800 MG, QD
     Route: 048
     Dates: start: 20160407, end: 20160417
  2. DECADRON [Concomitant]
     Active Substance: DEXAMETHASONE
     Indication: BRAIN OEDEMA
     Dosage: 1 MG, BID
     Route: 048
     Dates: start: 20160407

REACTIONS (1)
  - Erythema multiforme [Recovered/Resolved]

NARRATIVE: CASE EVENT DATE: 20160418
